FAERS Safety Report 7321771-0 (Version None)
Quarter: 2011Q1

REPORT INFORMATION
  Report Type: 
  Country: None (occurrence: None)
  Receive Date: 20110228
  Receipt Date: 20110222
  Transmission Date: 20110831
  Serious: Yes (Other)
  Sender: FDA-Public Use
  Company Number: US-ABBOTT-11P-163-0707117-00

PATIENT
  Sex: Female
  Weight: 99.88 kg

DRUGS (13)
  1. HUMIRA [Suspect]
     Indication: PSORIASIS
     Dates: start: 20090101, end: 20100101
  2. FORTAMET [Concomitant]
     Indication: DIABETES MELLITUS
  3. ASPIRIN [Concomitant]
     Indication: PROPHYLAXIS
  4. SYNTHROID [Concomitant]
     Indication: AUTOIMMUNE THYROIDITIS
  5. SYNTHROID [Concomitant]
     Indication: THYROIDECTOMY
  6. VITAMIN D [Concomitant]
     Indication: VITAMIN SUPPLEMENTATION
  7. SIMVASTATIN [Concomitant]
     Indication: BLOOD CHOLESTEROL INCREASED
  8. TRILIPIX [Concomitant]
     Indication: BLOOD CHOLESTEROL INCREASED
  9. FLONASE [Concomitant]
     Indication: HYPERSENSITIVITY
     Route: 045
  10. CLOBETASOL PROPIONATE [Concomitant]
     Indication: PSORIASIS
  11. SYNTHROID [Concomitant]
  12. ZYRTEC [Concomitant]
     Indication: HYPERSENSITIVITY
  13. TACLONEX [Concomitant]
     Indication: PSORIASIS

REACTIONS (2)
  - THROMBOSIS [None]
  - MENORRHAGIA [None]
